FAERS Safety Report 18273331 (Version 1)
Quarter: 2020Q3

REPORT INFORMATION
  Report Type: Spontaneous
  Country: US (occurrence: US)
  Receive Date: 20200916
  Receipt Date: 20200916
  Transmission Date: 20201103
  Serious: No
  Sender: FDA-Public Use
  Company Number: US-THERAPEUTICSMD-2020TMD02888

PATIENT
  Age: 53 Year
  Sex: Female
  Weight: 63.04 kg

DRUGS (4)
  1. IMVEXXY [Suspect]
     Active Substance: ESTRADIOL
     Indication: VAGINAL HAEMORRHAGE
     Dosage: 10 ?G, 2X/WEEK, BEFORE BED
     Route: 067
     Dates: start: 2020, end: 2020
  2. IMVEXXY [Suspect]
     Active Substance: ESTRADIOL
     Dosage: 10 ?G, 2X/WEEK, BEFORE BED
     Route: 067
     Dates: start: 202006
  3. IMVEXXY [Suspect]
     Active Substance: ESTRADIOL
     Indication: ATROPHIC VULVOVAGINITIS
     Dosage: 10 ?G, 1X/DAY, BEFORE BED
     Route: 067
     Dates: start: 202006, end: 202006
  4. IMVEXXY [Suspect]
     Active Substance: ESTRADIOL
     Indication: VULVOVAGINAL DRYNESS
     Dosage: 10 ?G, 1X/DAY, BEFORE BED
     Route: 067
     Dates: start: 202002, end: 2020

REACTIONS (4)
  - Vaginal haemorrhage [Recovered/Resolved]
  - Endometrial hyperplasia [Unknown]
  - Off label use [Not Recovered/Not Resolved]
  - Cervical cyst [Unknown]

NARRATIVE: CASE EVENT DATE: 202002
